FAERS Safety Report 8090824-4 (Version None)
Quarter: 2012Q1

REPORT INFORMATION
  Report Type: 
  Country: None (occurrence: None)
  Receive Date: 20120125
  Receipt Date: 20120116
  Transmission Date: 20120608
  Serious: Yes (Death, Hospitalization)
  Sender: FDA-Public Use
  Company Number: 2012MA000761

PATIENT
  Age: 24 Year
  Sex: Male

DRUGS (5)
  1. IBUPROFEN [Suspect]
  2. ASPIRIN [Suspect]
  3. IRON (IRON) [Suspect]
  4. FEVERALL [Suspect]
     Dosage: 5000 G
  5. KETAMINE HCL [Suspect]

REACTIONS (5)
  - MULTIPLE DRUG OVERDOSE [None]
  - CYTOLYTIC HEPATITIS [None]
  - CHOLESTASIS [None]
  - SEPTIC EMBOLUS [None]
  - HEPATIC STEATOSIS [None]
